FAERS Safety Report 6307680-4 (Version None)
Quarter: 2009Q3

REPORT INFORMATION
  Report Type: 
  Country: None (occurrence: None)
  Receive Date: 20090813
  Receipt Date: 20090810
  Transmission Date: 20100115
  Serious: Yes (Death, Hospitalization)
  Sender: FDA-Public Use
  Company Number: PHHY2009ES33348

PATIENT
  Age: 64 Year
  Sex: Male

DRUGS (6)
  1. SANDIMMUNE [Suspect]
     Dosage: 250 MG, QD
     Route: 048
     Dates: start: 20080519
  2. CELLCEPT [Suspect]
     Indication: LIVER TRANSPLANT
     Dosage: 1 G, QD
     Route: 048
     Dates: start: 20080512, end: 20080812
  3. PREDNISOLONE [Suspect]
     Indication: LIVER TRANSPLANT
     Dosage: 25 MG, QD
     Route: 048
     Dates: start: 20080512
  4. ALDACTONE [Concomitant]
     Dosage: 100 MG
     Route: 048
     Dates: end: 20080812
  5. INNOHEP [Concomitant]
     Dosage: 0.7 ML, QD
     Route: 058
     Dates: start: 20080501
  6. SEGURIL [Concomitant]
     Dosage: 100 MG, QD
     Route: 048
     Dates: start: 20080530, end: 20080812

REACTIONS (3)
  - CEREBRAL TOXOPLASMOSIS [None]
  - CYTOMEGALOVIRUS INFECTION [None]
  - HYPOVOLAEMIC SHOCK [None]
